FAERS Safety Report 9797557 (Version 2)
Quarter: 2014Q1

REPORT INFORMATION
  Report Type: Report from Study
  Country: CA (occurrence: CA)
  Receive Date: 20140106
  Receipt Date: 20140106
  Transmission Date: 20141002
  Serious: Yes (Hospitalization)
  Sender: FDA-Public Use
  Company Number: PHHY2013CA153037

PATIENT
  Age: 76 Year
  Sex: Female

DRUGS (15)
  1. ACLASTA [Suspect]
     Indication: OSTEOPOROSIS
     Dosage: UNK UKN, ANNUALLY
     Route: 042
     Dates: start: 20090119
  2. ACLASTA [Suspect]
     Dosage: UNK UKN, ANNUALLY
     Route: 042
     Dates: start: 20100128
  3. ACLASTA [Suspect]
     Dosage: UNK UKN, ANNUALLY
     Route: 042
     Dates: start: 20110124
  4. ACLASTA [Suspect]
     Dosage: UNK UKN, ANNUALLY
     Route: 042
     Dates: start: 20120124
  5. ACLASTA [Suspect]
     Dosage: UNK UKN, ANNUALLY
     Route: 042
     Dates: start: 20130122
  6. TYLENOL [Concomitant]
     Dosage: 650 MG, QD
  7. RIVOTRIL [Concomitant]
     Dosage: 0.25 MG, BID
  8. EFFEXOR - SLOW RELEASE [Concomitant]
     Dosage: 75 MG, UNK
  9. SEROQUEL [Concomitant]
     Dosage: 5 MG, UNK
  10. SERAX [Concomitant]
     Dosage: 15 MG, UNK
  11. URSO [Concomitant]
     Dosage: 250 MG, BID
  12. PANTOLOC//PANTOPRAZOLE SODIUM SESQUIHYDRATE [Concomitant]
     Dosage: UNK UKN, UNK
  13. MOTILIUM//DOMPERIDONE [Concomitant]
     Dosage: 1 DF, BID
  14. VITAMIN D [Concomitant]
     Dosage: 10000 IU, UNK
  15. CALCIUM [Concomitant]
     Dosage: 500 UKN, UNK

REACTIONS (7)
  - Bladder dysfunction [Recovered/Resolved]
  - Heart rate increased [Recovered/Resolved]
  - Clostridium difficile infection [Recovered/Resolved]
  - Syncope [Recovered/Resolved]
  - Cholecystitis [Recovered/Resolved]
  - Fall [Recovered/Resolved]
  - Dehydration [Recovered/Resolved]
